FAERS Safety Report 22613185 (Version 1)
Quarter: 2023Q2

REPORT INFORMATION
  Report Type: Spontaneous
  Country: US (occurrence: US)
  Receive Date: 20230618
  Receipt Date: 20230618
  Transmission Date: 20230722
  Serious: Yes (Other)
  Sender: FDA-Public Use
  Company Number: US-BRISTOL-MYERS SQUIBB COMPANY-2023-084468

PATIENT
  Age: 5 Month
  Sex: Female
  Weight: 6 kg

DRUGS (1)
  1. TRIAMCINOLONE ACETONIDE [Suspect]
     Active Substance: TRIAMCINOLONE ACETONIDE
     Indication: Oesophageal anastomosis
     Dosage: CUMULATIVE DOSE OF 3.1 MG/KG OVER 14 DAYS AND  CUMULATIVE DOSE OF 5.6 MG/KG OVER 5 WEEKS
     Route: 026

REACTIONS (2)
  - Adrenal insufficiency [Unknown]
  - Off label use [Unknown]
